FAERS Safety Report 12856602 (Version 2)
Quarter: 2016Q4

REPORT INFORMATION
  Report Type: Report from Study
  Country: CA (occurrence: CA)
  Receive Date: 20161018
  Receipt Date: 20161021
  Transmission Date: 20170207
  Serious: Yes (Other)
  Sender: FDA-Public Use
  Company Number: PHHY2016CA142380

PATIENT
  Sex: Male

DRUGS (8)
  1. CORTISONE [Concomitant]
     Active Substance: CORTISONE\HYDROCORTISONE
     Indication: PRODUCT USED FOR UNKNOWN INDICATION
     Route: 065
  2. REMICADE [Concomitant]
     Active Substance: INFLIXIMAB
     Indication: PRODUCT USED FOR UNKNOWN INDICATION
     Route: 065
  3. COSENTYX [Suspect]
     Active Substance: SECUKINUMAB
     Indication: ANKYLOSING SPONDYLITIS
     Dosage: 300 MG, QMO
     Route: 058
     Dates: start: 20160727
  4. COSENTYX [Suspect]
     Active Substance: SECUKINUMAB
     Dosage: UNK
     Route: 058
     Dates: start: 201609
  5. MORPHINE [Concomitant]
     Active Substance: MORPHINE
     Indication: PAIN
     Dosage: 2 TO 3 TIME PRE-COSENTYX AND NOW 4 TO 6 TIMES PER DAYUNK
     Route: 065
  6. SIMPONI [Concomitant]
     Active Substance: GOLIMUMAB
     Indication: PRODUCT USED FOR UNKNOWN INDICATION
     Route: 065
  7. HUMIRA [Concomitant]
     Active Substance: ADALIMUMAB
     Indication: PRODUCT USED FOR UNKNOWN INDICATION
     Route: 065
  8. DILAUDID [Concomitant]
     Active Substance: HYDROMORPHONE HYDROCHLORIDE
     Indication: PRODUCT USED FOR UNKNOWN INDICATION
     Route: 065

REACTIONS (14)
  - Back pain [Unknown]
  - Psoriasis [Unknown]
  - Incorrect dose administered [Unknown]
  - Fatigue [Unknown]
  - Cough [Unknown]
  - Depressed mood [Unknown]
  - Malaise [Unknown]
  - Constipation [Unknown]
  - Paralysis [Unknown]
  - Decreased appetite [Unknown]
  - Pain [Unknown]
  - Pain in extremity [Unknown]
  - Asthenia [Unknown]
  - Drug ineffective [Unknown]
